FAERS Safety Report 7422751-7 (Version None)
Quarter: 2011Q2

REPORT INFORMATION
  Report Type: 
  Country: None (occurrence: None)
  Receive Date: 20110419
  Receipt Date: 20110407
  Transmission Date: 20111010
  Serious: Yes (Hospitalization)
  Sender: FDA-Public Use
  Company Number: US-JNJFOC-20110301482

PATIENT
  Sex: Female
  Weight: 90.72 kg

DRUGS (5)
  1. LEVAQUIN [Suspect]
  2. LEVAQUIN [Suspect]
     Indication: UPPER RESPIRATORY TRACT INFECTION
  3. SIMPONI [Suspect]
     Indication: RHEUMATOID ARTHRITIS
     Route: 058
  4. NEXIUM [Concomitant]
     Indication: GASTROOESOPHAGEAL REFLUX DISEASE
  5. SIMPONI [Suspect]
     Route: 058

REACTIONS (11)
  - BLISTER [None]
  - PNEUMONIA [None]
  - ERYTHEMA [None]
  - JOINT SWELLING [None]
  - ARTHRALGIA [None]
  - UPPER RESPIRATORY TRACT INFECTION [None]
  - CHEST PAIN [None]
  - HYPERTENSION [None]
  - PAIN IN EXTREMITY [None]
  - PULMONARY MASS [None]
  - SINUSITIS [None]
